FAERS Safety Report 8465407-4 (Version None)
Quarter: 2012Q2

REPORT INFORMATION
  Report Type: 
  Country: None (occurrence: None)
  Receive Date: 20120626
  Receipt Date: 20120618
  Transmission Date: 20120825
  Serious: Yes (Hospitalization)
  Sender: FDA-Public Use
  Company Number: US-BAYER-2012-062028

PATIENT
  Age: 30 Year
  Sex: Female
  Weight: 71.202 kg

DRUGS (12)
  1. ASACOL [Concomitant]
  2. FLAGYL [Concomitant]
     Dosage: 500 MG, BID
     Route: 048
     Dates: start: 20110701
  3. ANUCORT-HC [Concomitant]
     Dosage: 25 MG, TID
     Route: 054
     Dates: start: 20110613
  4. IBUPROFEN [Concomitant]
  5. PREDNISONE [Concomitant]
  6. IRON SULFATETHIAMIN COMPOUND TAB [Concomitant]
  7. FLAGYL [Concomitant]
     Dosage: 500 MG, BID
     Route: 048
     Dates: start: 20110624
  8. PROCTOZONE-HC [Concomitant]
     Dosage: 2.5 %, BID, APPLY RECTALLY
     Route: 061
     Dates: start: 20110626
  9. DROSPIRENONE AND ETHINYL ESTRADIOL [Suspect]
  10. IBUPROFEN [Concomitant]
     Dosage: 400 MG, AS NEEDED
     Route: 048
     Dates: start: 20110701
  11. YASMIN [Suspect]
  12. MULTI-VITAMIN [Concomitant]

REACTIONS (1)
  - DEEP VEIN THROMBOSIS [None]
